FAERS Safety Report 5976674-0 (Version None)
Quarter: 2008Q4

REPORT INFORMATION
  Report Type: 
  Country: None (occurrence: None)
  Receive Date: 20081203
  Receipt Date: 20081124
  Transmission Date: 20090506
  Serious: Yes (Hospitalization)
  Sender: FDA-Public Use
  Company Number: US-JNJFOC-20080102532

PATIENT
  Sex: Female
  Weight: 90.72 kg

DRUGS (5)
  1. ORTHO EVRA [Suspect]
     Indication: CONTRACEPTION
     Route: 062
  2. XANAX [Concomitant]
  3. EFFEXOR XR [Concomitant]
  4. ZITHROMAX [Concomitant]
  5. SLEEPING PILL [Concomitant]

REACTIONS (6)
  - ANXIETY [None]
  - BACK PAIN [None]
  - DEPRESSION [None]
  - DYSPNOEA [None]
  - HEADACHE [None]
  - LOWER RESPIRATORY TRACT INFECTION [None]
